FAERS Safety Report 7445015-4 (Version None)
Quarter: 2011Q2

REPORT INFORMATION
  Report Type: 
  Country: None (occurrence: None)
  Receive Date: 20110429
  Receipt Date: 20110418
  Transmission Date: 20111010
  Serious: Yes (Other)
  Sender: FDA-Public Use
  Company Number: PHHY2011CA33079

PATIENT
  Sex: Male

DRUGS (1)
  1. SANDOSTATIN LAR [Suspect]
     Indication: ACROMEGALY
     Dosage: 30 MG, EVERY 3 WEEKS
     Route: 030
     Dates: start: 20070609

REACTIONS (5)
  - CHEST DISCOMFORT [None]
  - SPUTUM DISCOLOURED [None]
  - RESPIRATORY TRACT CONGESTION [None]
  - NASAL CONGESTION [None]
  - HYPOAESTHESIA [None]
